FAERS Safety Report 18103049 (Version 1)
Quarter: 2020Q3

REPORT INFORMATION
  Report Type: Spontaneous
  Country: US (occurrence: US)
  Receive Date: 20200731
  Receipt Date: 20200731
  Transmission Date: 20201103
  Serious: Yes (Death)
  Sender: FDA-Public Use
  Company Number: None

PATIENT
  Age: 75 Year
  Sex: Male
  Weight: 100 kg

DRUGS (18)
  1. REMDESIVIR. [Suspect]
     Active Substance: REMDESIVIR
     Indication: COVID-19
     Dosage: ?          OTHER FREQUENCY:ONCE;?
     Route: 041
     Dates: start: 20200716, end: 20200716
  2. ENOXPARIN [Concomitant]
     Dates: start: 20200716, end: 20200721
  3. INSULIN LISPRO [Concomitant]
     Active Substance: INSULIN LISPRO
     Dates: start: 20200707, end: 20200718
  4. MULTIVITAMIN [Concomitant]
     Active Substance: VITAMINS
     Dates: start: 20200708, end: 20200721
  5. DOXYCYCLINE. [Concomitant]
     Active Substance: DOXYCYCLINE
     Dates: start: 20200708, end: 20200719
  6. METOPROLOL. [Concomitant]
     Active Substance: METOPROLOL
     Dates: start: 20200707, end: 20200718
  7. REMDESIVIR. [Suspect]
     Active Substance: REMDESIVIR
     Indication: COVID-19
     Route: 041
     Dates: start: 20200717, end: 20200720
  8. FAMOTIDINE. [Concomitant]
     Active Substance: FAMOTIDINE
     Dates: start: 20200709, end: 20200727
  9. INSULIN GLARGINE [Concomitant]
     Active Substance: INSULIN GLARGINE
     Dates: start: 20200715, end: 20200718
  10. PIPERACILLIN/TAZOBACTAM [Concomitant]
     Active Substance: PIPERACILLIN SODIUM\TAZOBACTAM SODIUM
     Dates: start: 20200708, end: 20200717
  11. GABAPENTIN. [Concomitant]
     Active Substance: GABAPENTIN
     Dates: start: 20200707, end: 20200727
  12. IPRATROPIUM [Concomitant]
     Active Substance: IPRATROPIUM
     Dates: start: 20200708, end: 20200716
  13. ONDANSETRON [Concomitant]
     Active Substance: ONDANSETRON
     Dates: start: 20200711, end: 20200724
  14. ASCORBIC ACID. [Concomitant]
     Active Substance: ASCORBIC ACID
     Dates: start: 20200708, end: 20200727
  15. ASPIRIN. [Concomitant]
     Active Substance: ASPIRIN
     Dates: start: 20200708, end: 20200727
  16. DEXAMETHASONE. [Concomitant]
     Active Substance: DEXAMETHASONE
     Dates: start: 20200712, end: 20200719
  17. DOCUSATE [Concomitant]
     Active Substance: DOCUSATE
     Dates: start: 20200707, end: 20200721
  18. ZINC SULFATE. [Concomitant]
     Active Substance: ZINC SULFATE
     Dates: start: 20200708, end: 20200722

REACTIONS (1)
  - Death [None]

NARRATIVE: CASE EVENT DATE: 20200727
